FAERS Safety Report 9532300 (Version 4)
Quarter: 2013Q4

REPORT INFORMATION
  Report Type: Report from Study
  Country: US (occurrence: US)
  Receive Date: 20130918
  Receipt Date: 20131022
  Transmission Date: 20140711
  Serious: Yes (Other)
  Sender: FDA-Public Use
  Company Number: PHEH2013US018187

PATIENT
  Age: 48 Year
  Sex: Female
  Weight: 102.4 kg

DRUGS (1)
  1. GILENYA [Suspect]
     Indication: MULTIPLE SCLEROSIS
     Dosage: 0.5 MG, QD
     Route: 048
     Dates: start: 20130821

REACTIONS (13)
  - Cardiomegaly [Unknown]
  - Bronchitis [Recovered/Resolved]
  - Fungal infection [Unknown]
  - Parosmia [Not Recovered/Not Resolved]
  - Eructation [Not Recovered/Not Resolved]
  - Respiratory rate decreased [Unknown]
  - Nausea [Recovering/Resolving]
  - Fatigue [Recovering/Resolving]
  - Somnolence [Recovering/Resolving]
  - Hypotension [Unknown]
  - Visual acuity reduced [Unknown]
  - Diarrhoea [Recovering/Resolving]
  - Influenza [Recovered/Resolved]
